FAERS Safety Report 10734166 (Version 5)
Quarter: 2015Q3

REPORT INFORMATION
  Report Type: Report from Study
  Country: US (occurrence: US)
  Receive Date: 20150123
  Receipt Date: 20150710
  Transmission Date: 20151125
  Serious: Yes (Hospitalization, Other)
  Sender: FDA-Public Use
  Company Number: US-GILEAD-2015-0133402

PATIENT
  Age: 74 Year
  Sex: Female

DRUGS (1)
  1. AMBRISENTAN [Suspect]
     Active Substance: AMBRISENTAN
     Indication: PULMONARY HYPERTENSION
     Dosage: 5 MG, QD
     Route: 065
     Dates: start: 20141219, end: 201502

REACTIONS (6)
  - Dyspnoea [Unknown]
  - Oedema [Unknown]
  - Chest pain [Unknown]
  - Peripheral swelling [Unknown]
  - Right ventricular failure [Unknown]
  - Chest discomfort [Unknown]
